FAERS Safety Report 11344216 (Version 1)
Quarter: 2015Q3

REPORT INFORMATION
  Report Type: Spontaneous
  Country: US (occurrence: None)
  Receive Date: 20150803
  Receipt Date: 20150803
  Transmission Date: 20151125
  Serious: No
  Sender: FDA-Public Use
  Company Number: None

PATIENT
  Age: 48 Year
  Sex: Female
  Weight: 68.04 kg

DRUGS (2)
  1. MACROBID [Suspect]
     Active Substance: NITROFURANTOIN\NITROFURANTOIN MONOHYDRATE
     Indication: URINARY TRACT INFECTION
     Dosage: NITROFURANTOIN
  2. VITAMIN B [Concomitant]
     Active Substance: VITAMIN B

REACTIONS (3)
  - Headache [None]
  - Nausea [None]
  - Head discomfort [None]

NARRATIVE: CASE EVENT DATE: 20150801
